FAERS Safety Report 14045167 (Version 1)
Quarter: 2017Q4

REPORT INFORMATION
  Report Type: Spontaneous
  Country: US (occurrence: US)
  Receive Date: 20171005
  Receipt Date: 20171005
  Transmission Date: 20180321
  Serious: Yes (Hospitalization)
  Sender: FDA-Public Use
  Company Number: None

PATIENT
  Sex: Male

DRUGS (3)
  1. QUETIAPINE. [Suspect]
     Active Substance: QUETIAPINE
     Indication: ACCIDENTAL EXPOSURE TO PRODUCT
     Dates: start: 20171004, end: 20171004
  2. AGELESS MALE [Suspect]
     Active Substance: DIETARY SUPPLEMENT
     Indication: ACCIDENTAL EXPOSURE TO PRODUCT
     Dates: start: 20171004, end: 20171004
  3. ZYRTEC [Concomitant]
     Active Substance: CETIRIZINE HYDROCHLORIDE

REACTIONS (1)
  - Product packaging confusion [None]

NARRATIVE: CASE EVENT DATE: 20171004
